FAERS Safety Report 9813344 (Version 1)
Quarter: 2014Q1

REPORT INFORMATION
  Report Type: Spontaneous
  Country: IT (occurrence: None)
  Receive Date: 20140109
  Receipt Date: 20140109
  Transmission Date: 20141002
  Serious: Yes (Hospitalization)
  Sender: FDA-Public Use
  Company Number: AUR-APL-2014-00161

PATIENT
  Age: 63 Year
  Sex: Female

DRUGS (5)
  1. OLANZAPINE [Suspect]
     Indication: DEPRESSION
     Dosage: 20 MG, (10 MG, 2 IN 1D), UNKNOWN
  2. ARIPIPRAZOLE [Suspect]
     Indication: DEPRESSION
     Dosage: 5 MG {5 MG, 1 IN 1 D}, UNKNOWN
  3. TRIAZOLAM {TRIAZOLAM} [Concomitant]
  4. ALPRAZOLAM {ALPRAZOLAM} [Concomitant]
  5. PAROXETINE {PAROXETINE} [Concomitant]

REACTIONS (18)
  - Neuroleptic malignant syndrome [None]
  - Gait disturbance [None]
  - Musculoskeletal stiffness [None]
  - Depression [None]
  - Dementia [None]
  - Akathisia [None]
  - Insomnia [None]
  - Irritability [None]
  - Bradykinesia [None]
  - Cogwheel rigidity [None]
  - Dysarthria [None]
  - Mutism [None]
  - Leukocytosis [None]
  - Dysphagia [None]
  - Pneumonia [None]
  - Psychotic disorder [None]
  - Decreased interest [None]
  - Anhedonia [None]
